FAERS Safety Report 13472801 (Version 2)
Quarter: 2017Q2

REPORT INFORMATION
  Report Type: Spontaneous
  Country: US (occurrence: US)
  Receive Date: 20170424
  Receipt Date: 20170619
  Transmission Date: 20170830
  Serious: Yes (Death, Hospitalization)
  Sender: FDA-Public Use
  Company Number: US-KERYX BIOPHARMACEUTICALS, INC.-2017US002750

PATIENT
  Age: 82 Year
  Sex: Male

DRUGS (1)
  1. AURYXIA [Suspect]
     Active Substance: TETRAFERRIC TRICITRATE DECAHYDRATE
     Indication: HYPERPHOSPHATAEMIA
     Dosage: 8 G (8 TABLETS), DAILY
     Dates: start: 20170301, end: 20170302

REACTIONS (2)
  - Myocardial infarction [Fatal]
  - Fall [Unknown]

NARRATIVE: CASE EVENT DATE: 20170302
